FAERS Safety Report 14246454 (Version 1)
Quarter: 2017Q4

REPORT INFORMATION
  Report Type: Spontaneous
  Country: US (occurrence: None)
  Receive Date: 20171201
  Receipt Date: 20171201
  Transmission Date: 20180321
  Serious: Yes (Death)
  Sender: FDA-Public Use
  Company Number: None

PATIENT
  Age: 65 Year
  Sex: Female

DRUGS (1)
  1. BOTOX [Suspect]
     Active Substance: ONABOTULINUMTOXINA
     Indication: MIGRAINE
     Dosage: 2000 EVERY 3 MONTHS IN THE MUSCLE
     Route: 030
     Dates: start: 20170629

REACTIONS (1)
  - Death [None]

NARRATIVE: CASE EVENT DATE: 20171011
